FAERS Safety Report 8647889 (Version 3)
Quarter: 2013Q1

REPORT INFORMATION
  Report Type: Spontaneous
  Country: JP (occurrence: JP)
  Receive Date: 20120703
  Receipt Date: 20130322
  Transmission Date: 20140127
  Serious: Yes (Hospitalization)
  Sender: FDA-Public Use
  Company Number: JP-SHIRE-ALL1-2012-03126

PATIENT
  Age: 74 Year
  Sex: Male

DRUGS (1)
  1. FOSRENOL [Suspect]
     Indication: HYPERPHOSPHATAEMIA
     Dosage: 750 MG/DAY, UNKNOWN
     Route: 048

REACTIONS (2)
  - Large intestine perforation [Recovered/Resolved with Sequelae]
  - Wrong technique in drug usage process [Unknown]
